FAERS Safety Report 5603321-X (Version None)
Quarter: 2008Q1

REPORT INFORMATION
  Report Type: 
  Country: None (occurrence: None)
  Receive Date: 20080122
  Receipt Date: 20080108
  Transmission Date: 20080703
  Serious: Yes (Other)
  Sender: FDA-Public Use
  Company Number: US022083

PATIENT
  Age: 30 Year
  Sex: Female

DRUGS (2)
  1. ALERTEC [Suspect]
     Indication: HYPERSOMNIA
     Dosage: 200 MG BID ORAL
     Route: 048
     Dates: start: 20000101
  2. METHYLPHENIDATE HCL [Concomitant]

REACTIONS (2)
  - AGGRESSION [None]
  - AMNESIA [None]
